FAERS Safety Report 9834874 (Version 1)
Quarter: 2014Q1

REPORT INFORMATION
  Report Type: Spontaneous
  Country: US (occurrence: US)
  Receive Date: 20140122
  Receipt Date: 20140122
  Transmission Date: 20141002
  Serious: Yes (Death, Hospitalization)
  Sender: FDA-Public Use
  Company Number: US-GLAXOSMITHKLINE-A1056567A

PATIENT
  Age: 62 Year
  Sex: Male

DRUGS (3)
  1. ARIXTRA [Suspect]
     Indication: THROMBOSIS
     Route: 065
     Dates: start: 201310, end: 20131115
  2. CHEMOTHERAPY [Suspect]
     Indication: PRODUCT USED FOR UNKNOWN INDICATION
     Route: 065
  3. BLOOD PRESSURE MEDICINES [Concomitant]

REACTIONS (4)
  - Death [Fatal]
  - Platelet count decreased [Unknown]
  - Lymphadenopathy [Unknown]
  - Dysphagia [Unknown]
